FAERS Safety Report 7928343-5 (Version None)
Quarter: 2011Q4

REPORT INFORMATION
  Report Type: 
  Country: None (occurrence: None)
  Receive Date: 20111118
  Receipt Date: 20111115
  Transmission Date: 20120403
  Serious: Yes (Hospitalization, Other)
  Sender: FDA-Public Use
  Company Number: JP-PFIZER INC-2011280051

PATIENT
  Age: 84 Year
  Sex: Female

DRUGS (18)
  1. ALDACTONE [Concomitant]
     Dosage: 1 DF, 1X/DAY
     Route: 048
  2. CINAL [Concomitant]
     Dosage: 2 DF DAILY DOSAGE
  3. CLOBETASOL PROPIONATE [Concomitant]
     Dosage: UNK
  4. CLONAZEPAM [Concomitant]
     Dosage: 2 DF DAILY DOSAGE
     Route: 048
  5. LYRICA [Suspect]
     Indication: HYPOAESTHESIA
     Dosage: 75 MG, 2X/DAY
     Route: 048
     Dates: start: 20111105, end: 20111114
  6. LASIX [Concomitant]
     Dosage: 1 DF, 1X/DAY
     Route: 048
  7. AZUNOL [Concomitant]
  8. SIGMART [Concomitant]
     Dosage: 3 DF DAILY DOSAGE
     Route: 048
  9. AMITRIPTYLINE HCL [Concomitant]
     Dosage: 2.5 DF DAILY DOSAGE
     Route: 048
  10. PATANOL [Concomitant]
     Dosage: UNK
  11. OMEPRAZOLE [Concomitant]
     Dosage: 1 DF, 1X/DAY
     Route: 048
  12. ALLOPURINOL [Concomitant]
     Dosage: 1 DF, 1X/DAY
     Route: 048
  13. GEBEN [Concomitant]
     Dosage: UNK
  14. SILECE [Concomitant]
     Dosage: 1 DF, 1X/DAY
     Route: 048
  15. LYRICA [Suspect]
     Indication: NEURALGIA
     Dosage: 75 MG, 1X/DAY
     Route: 048
     Dates: start: 20111104, end: 20111104
  16. BETAMETHASONE [Concomitant]
     Dosage: UNK
  17. ANPLAG [Concomitant]
     Dosage: 1.5 DF DAILY DOSAGE
     Route: 048
  18. MYONAL [Concomitant]
     Dosage: 3 DF DAILY DOSAGE
     Route: 048

REACTIONS (3)
  - BLOOD CREATININE INCREASED [None]
  - SOMNOLENCE [None]
  - BLOOD UREA INCREASED [None]
